FAERS Safety Report 5594297-2 (Version None)
Quarter: 2008Q1

REPORT INFORMATION
  Report Type: 
  Country: None (occurrence: None)
  Receive Date: 20080117
  Receipt Date: 20080109
  Transmission Date: 20080703
  Serious: Yes (Hospitalization)
  Sender: FDA-Public Use
  Company Number: PHRM2008FR00554

PATIENT
  Age: 60 Year
  Sex: Female

DRUGS (10)
  1. NEO-CODION [Suspect]
     Indication: COUGH
     Route: 048
     Dates: start: 20071107
  2. PULMOSERUM [Suspect]
     Indication: COUGH
     Route: 048
     Dates: start: 20071107
  3. CELESTONE [Suspect]
     Indication: ASTHMA
     Route: 048
     Dates: start: 20071107
  4. BECOTIDE [Suspect]
     Indication: ASTHMA
     Dates: start: 20071107
  5. CARTREX [Suspect]
     Route: 065
  6. MONO-TILDIEM - SLOW RELEASE [Concomitant]
  7. ISOSORBIDE DINITRATE [Concomitant]
  8. AERIUS [Concomitant]
  9. ENDOTELON [Concomitant]
  10. ESIDRIX [Suspect]
     Route: 065

REACTIONS (9)
  - ABDOMINAL PAIN [None]
  - ACUTE RESPIRATORY FAILURE [None]
  - BLOOD AMYLASE INCREASED [None]
  - C-REACTIVE PROTEIN INCREASED [None]
  - DIARRHOEA [None]
  - LIPASE INCREASED [None]
  - PANCREATITIS ACUTE [None]
  - VOMITING [None]
  - WHITE BLOOD CELL COUNT INCREASED [None]
